FAERS Safety Report 14629346 (Version 1)
Quarter: 2018Q1

REPORT INFORMATION
  Report Type: Spontaneous
  Country: US (occurrence: US)
  Receive Date: 20180312
  Receipt Date: 20180312
  Transmission Date: 20180509
  Serious: No
  Sender: FDA-Public Use
  Company Number: None

PATIENT
  Age: 65 Year
  Sex: Female

DRUGS (2)
  1. TYMLOS [Suspect]
     Active Substance: ABALOPARATIDE
     Indication: OSTEOPOROSIS
     Route: 058
     Dates: start: 20171115, end: 20180312
  2. CALCIUM W/ VITAMIN D [Concomitant]

REACTIONS (4)
  - Kidney infection [None]
  - Arthralgia [None]
  - Cystitis [None]
  - Pain [None]

NARRATIVE: CASE EVENT DATE: 20180312
